FAERS Safety Report 6614484-1 (Version None)
Quarter: 2010Q1

REPORT INFORMATION
  Report Type: 
  Country: None (occurrence: None)
  Receive Date: 20100304
  Receipt Date: 20100304
  Transmission Date: 20100710
  Serious: No
  Sender: FDA-Public Use
  Company Number: None

PATIENT
  Age: 28 Year
  Sex: Female
  Weight: 83.9154 kg

DRUGS (1)
  1. BUDEPRION SR MFG TEVA [Suspect]
     Indication: SCHIZOPHRENIA
     Dosage: 150 MG DAILY PO
     Route: 048
     Dates: start: 20090811, end: 20100302

REACTIONS (1)
  - WEIGHT INCREASED [None]
